FAERS Safety Report 16162057 (Version 1)
Quarter: 2019Q2

REPORT INFORMATION
  Report Type: Spontaneous
  Country: US (occurrence: US)
  Receive Date: 20190301
  Receipt Date: 20190301
  Transmission Date: 20190711
  Serious: No
  Sender: FDA-Public Use
  Company Number: None

PATIENT
  Age: 70 Year
  Sex: Male

DRUGS (1)
  1. CAPECITABINE TAB [Suspect]
     Active Substance: CAPECITABINE
     Route: 048
     Dates: start: 20190218

REACTIONS (4)
  - Rash [None]
  - Back pain [None]
  - Pyrexia [None]
  - Gastrointestinal infection [None]

NARRATIVE: CASE EVENT DATE: 20190228
